FAERS Safety Report 6074356-0 (Version None)
Quarter: 2009Q1

REPORT INFORMATION
  Report Type: 
  Country: None (occurrence: None)
  Receive Date: 20090211
  Receipt Date: 20090130
  Transmission Date: 20090719
  Serious: Yes (Other)
  Sender: FDA-Public Use
  Company Number: IN-PFIZER INC-2009164678

PATIENT

DRUGS (4)
  1. SERTRALINE HCL [Suspect]
     Indication: OBSESSIVE-COMPULSIVE DISORDER
     Dosage: UNK
  2. FLUOXETINE [Suspect]
     Indication: OBSESSIVE-COMPULSIVE DISORDER
     Dosage: UNK
  3. AMISULPRIDE [Suspect]
     Indication: PARANOIA
     Dosage: 50 MG/DAY, INCREASED TO 150 MG/DAY OVER A 2-WEEK PERIOD
  4. AMISULPRIDE [Suspect]
     Indication: DEPRESSION

REACTIONS (3)
  - DEPRESSION [None]
  - PARANOIA [None]
  - SKIN HYPERPIGMENTATION [None]
